FAERS Safety Report 5153247-3 (Version None)
Quarter: 2006Q4

REPORT INFORMATION
  Report Type: 
  Country: None (occurrence: None)
  Receive Date: 20061117
  Receipt Date: 20061019
  Transmission Date: 20070319
  Serious: Yes (Hospitalization)
  Sender: FDA-Public Use
  Company Number: JP-ROCHE-468401

PATIENT
  Age: 46 Year
  Sex: Female
  Weight: 54 kg

DRUGS (7)
  1. XELODA [Suspect]
     Indication: BREAST CANCER METASTATIC
     Route: 048
     Dates: start: 20060104, end: 20060216
  2. XELODA [Suspect]
     Dosage: CAPECITABINE THERAPY WAS RESUMED.
     Route: 048
     Dates: start: 20060415
  3. ALEVIATIN [Suspect]
     Indication: CONVULSION PROPHYLAXIS
     Route: 048
     Dates: start: 20051115, end: 20060228
  4. DECADRON [Concomitant]
     Route: 048
     Dates: start: 20051115
  5. GASTER D [Concomitant]
     Route: 048
     Dates: start: 20051115
  6. LOXONIN [Concomitant]
     Indication: PAIN
     Dosage: TAKEN AS NEEDED FOR PAIN.
     Route: 048
  7. MUCOSTA [Concomitant]
     Indication: PAIN
     Dosage: TAKEN AS NEEDED FOR PAIN.
     Route: 048

REACTIONS (10)
  - ANTICONVULSANT TOXICITY [None]
  - DIZZINESS [None]
  - DRUG INTERACTION [None]
  - DRUG TOXICITY [None]
  - DYSARTHRIA [None]
  - FALL [None]
  - GAIT DISTURBANCE [None]
  - HYPOAESTHESIA [None]
  - MALAISE [None]
  - SPEECH DISORDER [None]
